FAERS Safety Report 14676289 (Version 1)
Quarter: 2018Q1

REPORT INFORMATION
  Report Type: Spontaneous
  Country: LT (occurrence: LT)
  Receive Date: 20180324
  Receipt Date: 20180324
  Transmission Date: 20180509
  Serious: Yes (Life-Threatening, Hospitalization)
  Sender: FDA-Public Use
  Company Number: LT-TEVA-2018-LT-870892

PATIENT
  Age: 69 Year
  Sex: Female
  Weight: 70 kg

DRUGS (4)
  1. MIRTAZAPINE TABLETS [Suspect]
     Active Substance: MIRTAZAPINE
     Indication: COMPLETED SUICIDE
     Route: 048
  2. LORAFEN [Suspect]
     Active Substance: LORAZEPAM
     Indication: COMPLETED SUICIDE
     Route: 048
  3. CHLORDIAZEPOXIDE - TABLET [Suspect]
     Active Substance: CHLORDIAZEPOXIDE
     Indication: COMPLETED SUICIDE
     Route: 048
  4. DIAZEPAM. [Suspect]
     Active Substance: DIAZEPAM
     Indication: COMPLETED SUICIDE
     Route: 048

REACTIONS (4)
  - Hypoglycaemia [Recovering/Resolving]
  - Intentional product misuse [Recovering/Resolving]
  - Intentional overdose [Recovering/Resolving]
  - Stupor [Recovering/Resolving]
